FAERS Safety Report 24398219 (Version 1)
Quarter: 2024Q4

REPORT INFORMATION
  Report Type: Spontaneous
  Country: US (occurrence: US)
  Receive Date: 20241004
  Receipt Date: 20241004
  Transmission Date: 20250115
  Serious: Yes (Other)
  Sender: TEVA
  Company Number: US-TEVA-VS-3248643

PATIENT
  Sex: Female

DRUGS (4)
  1. LETROZOLE [Suspect]
     Active Substance: LETROZOLE
     Indication: Product used for unknown indication
     Route: 048
     Dates: start: 201604
  2. IBRANCE [Suspect]
     Active Substance: PALBOCICLIB
     Indication: Breast cancer metastatic
     Dosage: TIME INTERVAL: CYCLICAL: (21 DAYS ON, 7 DAYS OFF)
     Route: 048
     Dates: start: 20160401, end: 202207
  3. IBRANCE [Suspect]
     Active Substance: PALBOCICLIB
     Indication: Breast cancer metastatic
     Dosage: TIME INTERVAL: CYCLICAL: 21 DAYS ON, 7 DAYS OFF,? CURRENTLY ON TABLETS AND HAS NOT BEEN ON CAPSUL...
     Route: 048
  4. LUPRON [Concomitant]
     Active Substance: LEUPROLIDE ACETATE
     Indication: Product used for unknown indication
     Dosage: 2 DOSES
     Route: 065
     Dates: start: 201604

REACTIONS (7)
  - Ankle fracture [Recovered/Resolved]
  - Hyperhidrosis [Not Recovered/Not Resolved]
  - Foreign body in throat [Unknown]
  - Cough [Unknown]
  - Fall [Recovered/Resolved]
  - Hot flush [Not Recovered/Not Resolved]
  - COVID-19 [Recovered/Resolved]

NARRATIVE: CASE EVENT DATE: 20220101
